FAERS Safety Report 4486141-1 (Version None)
Quarter: 2004Q4

REPORT INFORMATION
  Report Type: 
  Country: None (occurrence: None)
  Receive Date: 20041026
  Receipt Date: 20041014
  Transmission Date: 20050328
  Serious: Yes (Hospitalization, Disabling)
  Sender: FDA-Public Use
  Company Number: US-MERCK-0410USA02248

PATIENT
  Age: 71 Year
  Sex: Male

DRUGS (5)
  1. VIOXX [Suspect]
     Route: 048
     Dates: start: 20020601, end: 20031201
  2. LOTREL [Concomitant]
     Route: 065
  3. ASPIRIN [Concomitant]
     Route: 065
  4. FLONASE [Concomitant]
     Route: 065
  5. TENORMIN [Concomitant]
     Route: 065

REACTIONS (3)
  - CEREBROVASCULAR ACCIDENT [None]
  - GASTRIC DISORDER [None]
  - MOVEMENT DISORDER [None]
